FAERS Safety Report 8394479-0 (Version None)
Quarter: 2012Q2

REPORT INFORMATION
  Report Type: 
  Country: None (occurrence: None)
  Receive Date: 20120530
  Receipt Date: 20120524
  Transmission Date: 20120825
  Serious: Yes (Hospitalization, Other)
  Sender: FDA-Public Use
  Company Number: PHHY2011DE67648

PATIENT
  Sex: Female
  Weight: 65 kg

DRUGS (2)
  1. GILENYA [Suspect]
     Indication: MULTIPLE SCLEROSIS
     Dosage: 0.5 MG, DAILY
     Route: 048
     Dates: start: 20110719
  2. GILENYA [Suspect]
     Dosage: 0.5 MG, QOD
     Route: 048

REACTIONS (12)
  - FEELING ABNORMAL [None]
  - LICHEN PLANUS [None]
  - RASH [None]
  - LYMPHOCYTE COUNT DECREASED [None]
  - ERYTHEMA MULTIFORME [None]
  - BLISTER [None]
  - INDURATION [None]
  - WHITE BLOOD CELL COUNT DECREASED [None]
  - INAPPROPRIATE SCHEDULE OF DRUG ADMINISTRATION [None]
  - HYPERKALAEMIA [None]
  - FATIGUE [None]
  - RASH PUSTULAR [None]
